FAERS Safety Report 8883134 (Version 2)
Quarter: 2012Q4

REPORT INFORMATION
  Report Type: 
  Country: AR (occurrence: AR)
  Receive Date: 20121102
  Receipt Date: 20121206
  Transmission Date: 20130627
  Serious: Yes (Death, Hospitalization, Other)
  Sender: FDA-Public Use
  Company Number: PHHY2012AR099255

PATIENT
  Sex: Male

DRUGS (1)
  1. DIOVAN [Suspect]
     Indication: HYPERTENSION
     Dosage: 80 mg, UNK

REACTIONS (8)
  - Diabetic complication [Fatal]
  - Hypokinesia [Fatal]
  - Cardio-respiratory arrest [Fatal]
  - Dehydration [Unknown]
  - Throat irritation [Unknown]
  - Aphagia [Unknown]
  - Odynophagia [Unknown]
  - Generalised oedema [Unknown]
